FAERS Safety Report 21088735 (Version 5)
Quarter: 2022Q3

REPORT INFORMATION
  Report Type: Spontaneous
  Country: US (occurrence: US)
  Receive Date: 20220715
  Receipt Date: 20220829
  Transmission Date: 20221027
  Serious: No
  Sender: FDA-Public Use
  Company Number: US-NOVARTISTESTPH-NVSC2022US160017

PATIENT
  Age: 73 Year
  Sex: Female

DRUGS (2)
  1. TRAVATAN Z [Suspect]
     Active Substance: TRAVOPROST
     Indication: Product used for unknown indication
     Dosage: 1 DRP (IN BOTH EYES), (ONCE NIGHTLY)
     Route: 065
  2. TRAVATAN Z [Suspect]
     Active Substance: TRAVOPROST
     Dosage: UNK
     Route: 065

REACTIONS (4)
  - Feeling abnormal [Unknown]
  - Eye infection [Recovered/Resolved]
  - Eye irritation [Unknown]
  - Eyelid irritation [Unknown]

NARRATIVE: CASE EVENT DATE: 20220705
